FAERS Safety Report 8514524-9 (Version None)
Quarter: 2012Q3

REPORT INFORMATION
  Report Type: 
  Country: None (occurrence: None)
  Receive Date: 20120717
  Receipt Date: 20120716
  Transmission Date: 20120928
  Serious: Yes (Hospitalization, Other)
  Sender: FDA-Public Use
  Company Number: US-PFIZER INC-2012147320

PATIENT
  Sex: Female
  Weight: 129 kg

DRUGS (4)
  1. ZOLOFT [Suspect]
     Indication: POST-TRAUMATIC STRESS DISORDER
     Dosage: 2 TABLETS OF 100MG, DAILY
     Route: 048
     Dates: start: 20030101
  2. EFFEXOR XR [Suspect]
     Indication: MAJOR DEPRESSION
  3. ZOLOFT [Suspect]
     Indication: DEPRESSION
  4. EFFEXOR XR [Suspect]
     Indication: GENERALISED ANXIETY DISORDER
     Dosage: 150 MG, DAILY

REACTIONS (6)
  - IRRITABILITY [None]
  - HORMONE LEVEL ABNORMAL [None]
  - DYSPNOEA [None]
  - ROAD TRAFFIC ACCIDENT [None]
  - ANXIETY [None]
  - WITHDRAWAL SYNDROME [None]
